FAERS Safety Report 25289481 (Version 1)
Quarter: 2025Q2

REPORT INFORMATION
  Report Type: Spontaneous
  Country: US (occurrence: US)
  Receive Date: 20250509
  Receipt Date: 20250509
  Transmission Date: 20250716
  Serious: No
  Sender: ABBVIE
  Company Number: US-ABBVIE-6275059

PATIENT
  Sex: Female

DRUGS (1)
  1. SKYRIZI [Suspect]
     Active Substance: RISANKIZUMAB-RZAA
     Indication: Product used for unknown indication
     Route: 058

REACTIONS (12)
  - Hyperhidrosis [Unknown]
  - Fatigue [Unknown]
  - Chills [Unknown]
  - Myalgia [Unknown]
  - Diarrhoea [Unknown]
  - Abdominal pain upper [Unknown]
  - Dysuria [Unknown]
  - Pollakiuria [Unknown]
  - Migraine [Unknown]
  - Arthralgia [Unknown]
  - Back pain [Unknown]
  - Somnolence [Unknown]
